FAERS Safety Report 25976300 (Version 1)
Quarter: 2025Q4

REPORT INFORMATION
  Report Type: Spontaneous
  Country: EU (occurrence: EU)
  Receive Date: 20251029
  Receipt Date: 20251029
  Transmission Date: 20260118
  Serious: Yes (Hospitalization)
  Sender: MYLAN
  Company Number: None

PATIENT
  Age: 90 Year
  Sex: Female
  Weight: 66 kg

DRUGS (20)
  1. FENTANYL [Suspect]
     Active Substance: FENTANYL
     Indication: Analgesic intervention supportive therapy
     Dosage: 1 DOSAGE FORM, QD
  2. FENTANYL [Suspect]
     Active Substance: FENTANYL
     Dosage: 1 DOSAGE FORM, QD
     Route: 042
  3. FENTANYL [Suspect]
     Active Substance: FENTANYL
     Dosage: 1 DOSAGE FORM, QD
     Route: 042
  4. FENTANYL [Suspect]
     Active Substance: FENTANYL
     Dosage: 1 DOSAGE FORM, QD
  5. MIDAZOLAM [Suspect]
     Active Substance: MIDAZOLAM
     Indication: Analgesic intervention supportive therapy
     Dosage: 1 DOSAGE FORM, TOTAL
     Dates: start: 20250916, end: 20250916
  6. MIDAZOLAM [Suspect]
     Active Substance: MIDAZOLAM
     Dosage: 1 DOSAGE FORM, TOTAL
     Route: 058
     Dates: start: 20250916, end: 20250916
  7. MIDAZOLAM [Suspect]
     Active Substance: MIDAZOLAM
     Dosage: 1 DOSAGE FORM, TOTAL
     Route: 058
     Dates: start: 20250916, end: 20250916
  8. MIDAZOLAM [Suspect]
     Active Substance: MIDAZOLAM
     Dosage: 1 DOSAGE FORM, TOTAL
     Dates: start: 20250916, end: 20250916
  9. FENTANYL [Suspect]
     Active Substance: FENTANYL
     Indication: Analgesic intervention supportive therapy
     Dosage: 50 MICROGRAM, TOTAL
     Dates: start: 20250914, end: 20250916
  10. FENTANYL [Suspect]
     Active Substance: FENTANYL
     Dosage: 50 MICROGRAM, TOTAL
     Route: 062
     Dates: start: 20250914, end: 20250916
  11. FENTANYL [Suspect]
     Active Substance: FENTANYL
     Dosage: 50 MICROGRAM, TOTAL
     Route: 062
     Dates: start: 20250914, end: 20250916
  12. FENTANYL [Suspect]
     Active Substance: FENTANYL
     Dosage: 50 MICROGRAM, TOTAL
     Dates: start: 20250914, end: 20250916
  13. PECFENT [Suspect]
     Active Substance: FENTANYL CITRATE
     Indication: Analgesic intervention supportive therapy
     Dosage: 100 MICROGRAM, Q6H
     Dates: start: 20250916, end: 20250917
  14. PECFENT [Suspect]
     Active Substance: FENTANYL CITRATE
     Dosage: 100 MICROGRAM, Q6H
     Route: 045
     Dates: start: 20250916, end: 20250917
  15. PECFENT [Suspect]
     Active Substance: FENTANYL CITRATE
     Dosage: 100 MICROGRAM, Q6H
     Route: 045
     Dates: start: 20250916, end: 20250917
  16. PECFENT [Suspect]
     Active Substance: FENTANYL CITRATE
     Dosage: 100 MICROGRAM, Q6H
     Dates: start: 20250916, end: 20250917
  17. MORPHINE SULFATE [Suspect]
     Active Substance: MORPHINE SULFATE
     Indication: Analgesic intervention supportive therapy
     Dosage: 1 DOSAGE FORM, TOTAL
     Dates: start: 20250915, end: 20250916
  18. MORPHINE SULFATE [Suspect]
     Active Substance: MORPHINE SULFATE
     Dosage: 1 DOSAGE FORM, TOTAL
     Route: 048
     Dates: start: 20250915, end: 20250916
  19. MORPHINE SULFATE [Suspect]
     Active Substance: MORPHINE SULFATE
     Dosage: 1 DOSAGE FORM, TOTAL
     Route: 048
     Dates: start: 20250915, end: 20250916
  20. MORPHINE SULFATE [Suspect]
     Active Substance: MORPHINE SULFATE
     Dosage: 1 DOSAGE FORM, TOTAL
     Dates: start: 20250915, end: 20250916

REACTIONS (3)
  - Disturbance in attention [Recovered/Resolved]
  - Dyskinesia [Not Recovered/Not Resolved]
  - Respiratory depression [Recovered/Resolved]

NARRATIVE: CASE EVENT DATE: 20250916
